FAERS Safety Report 6407095-4 (Version None)
Quarter: 2009Q4

REPORT INFORMATION
  Report Type: 
  Country: None (occurrence: None)
  Receive Date: 20091020
  Receipt Date: 20091009
  Transmission Date: 20100525
  Serious: Yes (Hospitalization)
  Sender: FDA-Public Use
  Company Number: BR-NOVOPROD-292660

PATIENT
  Age: 63 Year
  Sex: Male
  Weight: 106 kg

DRUGS (6)
  1. NOVOLOG [Suspect]
     Indication: TYPE 2 DIABETES MELLITUS
     Dosage: 36 U, QD
     Route: 058
     Dates: start: 20090930, end: 20091004
  2. NOVOMIX 30 FLEXPEN [Suspect]
     Indication: TYPE 2 DIABETES MELLITUS
     Dosage: 36 U, QD
     Route: 058
  3. INSULIN REGULAR                    /01223201/ [Concomitant]
     Indication: TYPE 2 DIABETES MELLITUS
     Dosage: 4 IU, UNK
  4. METFORMIN [Concomitant]
     Indication: DIABETES MELLITUS
     Dosage: 3 TAB, QD
     Route: 048
     Dates: start: 20010101
  5. ACETYLSALICYLIC ACID [Concomitant]
     Dosage: 1 TAB, QD
     Route: 048
     Dates: start: 19920101
  6. GLIBENCLAMIDE [Concomitant]
     Indication: DIABETES MELLITUS
     Dosage: 10 MG, QD
     Route: 048

REACTIONS (2)
  - DIABETIC FOOT INFECTION [None]
  - HYPOGLYCAEMIA [None]
